FAERS Safety Report 13791767 (Version 5)
Quarter: 2019Q2

REPORT INFORMATION
  Report Type: Report from Study
  Country: US (occurrence: US)
  Receive Date: 20170725
  Receipt Date: 20190404
  Transmission Date: 20190711
  Serious: Yes (Hospitalization)
  Sender: FDA-Public Use
  Company Number: US-ACTELION-A-NJ2017-157052

PATIENT
  Age: 83 Year
  Sex: Female

DRUGS (9)
  1. OPSUMIT [Suspect]
     Active Substance: MACITENTAN
     Indication: PULMONARY ARTERIAL HYPERTENSION
     Dosage: 10 MG, QD
     Route: 048
     Dates: start: 20170623
  2. BABY ASPIRIN [Concomitant]
     Active Substance: ASPIRIN
     Dosage: 81 MG, QD
  3. SILDENAFIL. [Concomitant]
     Active Substance: SILDENAFIL
     Dosage: 20 MG, TID
  4. VITAMIN D2 [Concomitant]
     Active Substance: ERGOCALCIFEROL
     Dosage: 2000 I/U, BID
  5. LISINOPRIL. [Concomitant]
     Active Substance: LISINOPRIL
     Dosage: 40 MG, QD
  6. CITALOPRAM [Concomitant]
     Active Substance: CITALOPRAM HYDROBROMIDE
     Dosage: 10 MG, QD
  7. CARVEDILOL. [Concomitant]
     Active Substance: CARVEDILOL
     Dosage: 12.5 MG, BID
  8. ATORVASTATIN [Concomitant]
     Active Substance: ATORVASTATIN
     Dosage: 40 MG, QD
  9. FISH OIL [Concomitant]
     Active Substance: FISH OIL
     Dosage: 1000 MG, QD

REACTIONS (13)
  - Unresponsive to stimuli [Recovered/Resolved]
  - Anaemia [Recovered/Resolved]
  - Myocardial infarction [Recovered/Resolved]
  - Hypotension [Recovered/Resolved]
  - Transfusion [Recovered/Resolved]
  - Thyroid disorder [Unknown]
  - Loss of personal independence in daily activities [Not Recovered/Not Resolved]
  - Confusional state [Not Recovered/Not Resolved]
  - Heart rate irregular [Recovered/Resolved]
  - Atrial fibrillation [Unknown]
  - Cardiac pacemaker insertion [Unknown]
  - Haemoglobin decreased [Recovered/Resolved]
  - Dementia [Not Recovered/Not Resolved]

NARRATIVE: CASE EVENT DATE: 201706
